FAERS Safety Report 6369966-7 (Version None)
Quarter: 2009Q3

REPORT INFORMATION
  Report Type: 
  Country: None (occurrence: None)
  Receive Date: 20090923
  Receipt Date: 20070807
  Transmission Date: 20100115
  Serious: Yes (Other)
  Sender: FDA-Public Use
  Company Number: US-ASTRAZENECA-2006UW07950

PATIENT
  Age: 18319 Day
  Sex: Male
  Weight: 132 kg

DRUGS (14)
  1. SEROQUEL [Suspect]
     Indication: POST-TRAUMATIC STRESS DISORDER
     Route: 048
     Dates: start: 20040101
  2. SEROQUEL [Suspect]
     Indication: NERVOUSNESS
     Route: 048
     Dates: start: 20040101
  3. SEROQUEL [Suspect]
     Indication: MENTAL DISORDER
     Route: 048
     Dates: start: 20040101
  4. SEROQUEL [Suspect]
     Dosage: 100 TO 400 MG
     Route: 048
     Dates: start: 20060417
  5. SEROQUEL [Suspect]
     Dosage: 100 TO 400 MG
     Route: 048
     Dates: start: 20060417
  6. SEROQUEL [Suspect]
     Dosage: 100 TO 400 MG
     Route: 048
     Dates: start: 20060417
  7. VALSARTAN [Concomitant]
     Indication: CARDIAC DISORDER
     Route: 048
     Dates: start: 20060417
  8. VALSARTAN [Concomitant]
     Indication: BLOOD PRESSURE
     Route: 048
     Dates: start: 20060417
  9. SIMVASTATIN [Concomitant]
     Indication: BLOOD CHOLESTEROL ABNORMAL
     Route: 048
     Dates: start: 20060417
  10. CLONIDINE HCL [Concomitant]
     Indication: CARDIAC DISORDER
     Dosage: 0.1 MG THREE TABLETS TWICE A DAY
     Dates: start: 20060417
  11. CLONIDINE HCL [Concomitant]
     Indication: BLOOD PRESSURE
     Dosage: 0.1 MG THREE TABLETS TWICE A DAY
     Dates: start: 20060417
  12. GABAPENTIN [Concomitant]
     Indication: CONVULSION
     Dosage: 400 MG 1 CAPSULE THREE TIMES A DAY 100 MG 2 CAPSULES
     Dates: start: 20060417
  13. FUROSEMIDE [Concomitant]
     Route: 048
  14. ACETAMINOPHEN AND HYDROCODONE BITARTRATE [Concomitant]
     Indication: PAIN
     Dosage: 7.5/500 MG, TWO TABLETS TWICE A DAY

REACTIONS (6)
  - BLOOD CHOLESTEROL INCREASED [None]
  - DIABETES MELLITUS [None]
  - DIABETES MELLITUS INADEQUATE CONTROL [None]
  - GLUCOSE TOLERANCE IMPAIRED [None]
  - MIXED HYPERLIPIDAEMIA [None]
  - TYPE 1 DIABETES MELLITUS [None]
